FAERS Safety Report 7801781-7 (Version None)
Quarter: 2011Q4

REPORT INFORMATION
  Report Type: 
  Country: None (occurrence: None)
  Receive Date: 20111007
  Receipt Date: 20110929
  Transmission Date: 20120403
  Serious: Yes (Hospitalization)
  Sender: FDA-Public Use
  Company Number: FR-BRISTOL-MYERS SQUIBB COMPANY-15754666

PATIENT
  Age: 54 Year
  Sex: Female
  Weight: 50 kg

DRUGS (10)
  1. PEMETREXED DISODIUM [Suspect]
     Indication: HEAD AND NECK CANCER
     Dosage: 500MG/M2:ON DAY1 EVERY 21 DAYS,
     Route: 042
     Dates: start: 20110117
  2. FOLIC ACID [Concomitant]
     Dates: start: 20110110
  3. CISPLATIN [Suspect]
     Indication: HEAD AND NECK CANCER
     Dosage: 75MG/M2:ON DAY1 EVERY 21 DAYS.
     Route: 042
     Dates: start: 20110117
  4. DEXAMETHASONE [Concomitant]
     Dates: start: 20110110
  5. CETUXIMAB [Suspect]
     Indication: HEAD AND NECK CANCER
     Dosage: 400MG/M2:ON DAY1 CYCLE 1 ONLY-17JAN11TO17JAN11. 250MG/M2:WEEKLY(ONG),ALSO TAKEN ON 24MAY2011
     Route: 042
     Dates: start: 20110117
  6. VITAMIN B-12 [Concomitant]
     Dates: start: 20110110
  7. PROZAC [Concomitant]
     Dates: start: 19980101
  8. LEXOMIL [Concomitant]
  9. POTASSIUM [Concomitant]
     Dates: start: 20110117
  10. ZOLPIDEM [Concomitant]
     Dates: start: 19980101

REACTIONS (1)
  - SYNCOPE [None]
